FAERS Safety Report 5017820-5 (Version None)
Quarter: 2006Q2

REPORT INFORMATION
  Report Type: 
  Country: None (occurrence: None)
  Receive Date: 20060605
  Receipt Date: 20060526
  Transmission Date: 20061013
  Serious: Yes (Other)
  Sender: FDA-Public Use
  Company Number: PHBS2006IN08104

PATIENT
  Age: 70 Year
  Sex: Female

DRUGS (3)
  1. CALCIUM GLUCONATE [Concomitant]
  2. ALENDRONATE SODIUM [Concomitant]
  3. MIACALCIN [Suspect]
     Indication: SENILE OSTEOPOROSIS
     Route: 045

REACTIONS (2)
  - BLINDNESS UNILATERAL [None]
  - VISUAL DISTURBANCE [None]
